FAERS Safety Report 9006035 (Version 1)
Quarter: 2013Q1

REPORT INFORMATION
  Report Type: Spontaneous
  Country: BE (occurrence: BE)
  Receive Date: 20130109
  Receipt Date: 20130109
  Transmission Date: 20140127
  Serious: Yes (Hospitalization)
  Sender: FDA-Public Use
  Company Number: PHHY2013BE001712

PATIENT
  Age: 68 Year
  Sex: Male

DRUGS (2)
  1. SANDOSTATIN LAR [Suspect]
     Indication: POST GASTRIC SURGERY SYNDROME
     Dosage: 30 MG, MONTHLY
     Route: 030
     Dates: start: 20120608, end: 201212
  2. PROTON PUMP INHIBITORS [Concomitant]

REACTIONS (2)
  - Palpitations [Recovering/Resolving]
  - Abdominal pain upper [Recovering/Resolving]
